FAERS Safety Report 18417400 (Version 1)
Quarter: 2020Q4

REPORT INFORMATION
  Report Type: Spontaneous
  Country: US (occurrence: US)
  Receive Date: 20201022
  Receipt Date: 20201022
  Transmission Date: 20210114
  Serious: No
  Sender: FDA-Public Use
  Company Number: US-SEATTLE GENETICS-2020SGN03879

PATIENT
  Age: 52 Year
  Sex: Female
  Weight: 45 kg

DRUGS (5)
  1. TUKYSA [Suspect]
     Active Substance: TUCATINIB
     Dosage: 150MG IN THE MORNING, 300MG IN THE EVENING
     Dates: start: 20200818, end: 20200819
  2. TUKYSA [Suspect]
     Active Substance: TUCATINIB
     Dosage: 300 MG, BID
     Dates: start: 20200826
  3. TUKYSA [Suspect]
     Active Substance: TUCATINIB
     Dosage: 300 UNK
     Dates: start: 20200810, end: 20200812
  4. TUKYSA [Suspect]
     Active Substance: TUCATINIB
     Indication: BREAST CANCER STAGE IV
     Dosage: 300 MG, BID
     Dates: start: 20200720
  5. TUKYSA [Suspect]
     Active Substance: TUCATINIB
     Dosage: 150 MG, BID
     Dates: start: 20200815, end: 20200817

REACTIONS (9)
  - Stomatitis [Unknown]
  - Product dose omission issue [Unknown]
  - Blister [Unknown]
  - Skin discolouration [Unknown]
  - Diarrhoea [Recovered/Resolved]
  - Burning sensation [Unknown]
  - Skin hypertrophy [Unknown]
  - Palmar-plantar erythrodysaesthesia syndrome [Unknown]
  - Pain in extremity [Unknown]

NARRATIVE: CASE EVENT DATE: 20200813
